FAERS Safety Report 4351128-6 (Version None)
Quarter: 2004Q2

REPORT INFORMATION
  Report Type: 
  Country: None (occurrence: None)
  Receive Date: 20040428
  Receipt Date: 20031218
  Transmission Date: 20050107
  Serious: Yes (Other)
  Sender: FDA-Public Use
  Company Number: US-JNJFOC-20030802814

PATIENT
  Age: 35 Year
  Sex: Female
  Weight: 65.7716 kg

DRUGS (12)
  1. ULTRAM [Suspect]
     Indication: ABDOMINAL PAIN
     Dosage: 3 TABLETS ONLY
     Dates: start: 20030722, end: 20030728
  2. LEXAPRO (ALL OTHER THERAPEUTIC PRODUCTS) [Concomitant]
  3. LUPRON DEPOT (LEUPRORELIN ACETATE) [Concomitant]
  4. VIOXX [Concomitant]
  5. FIORINAL [Concomitant]
  6. MAXALT [Concomitant]
  7. ALLEGRA [Concomitant]
  8. ENTEX CAP [Concomitant]
  9. ZOFRAN [Concomitant]
  10. ZANTAC [Concomitant]
  11. PERCOCET [Concomitant]
  12. DARVOCET [Concomitant]

REACTIONS (1)
  - CONVULSION [None]
